FAERS Safety Report 5454524-9 (Version None)
Quarter: 2007Q3

REPORT INFORMATION
  Report Type: 
  Country: None (occurrence: None)
  Receive Date: 20070917
  Receipt Date: 20060731
  Transmission Date: 20080115
  Serious: No
  Sender: FDA-Public Use
  Company Number: US-ASTRAZENECA-2006UW15313

PATIENT
  Age: 44 Year
  Sex: Male
  Weight: 88.5 kg

DRUGS (2)
  1. SEROQUEL [Suspect]
     Indication: BIPOLAR DISORDER
     Route: 048
     Dates: start: 20060724, end: 20060101
  2. SEROQUEL [Suspect]
     Route: 048
     Dates: start: 20060101

REACTIONS (4)
  - DYSKINESIA [None]
  - FEELING JITTERY [None]
  - MUSCLE TWITCHING [None]
  - SOMNOLENCE [None]
